FAERS Safety Report 7527427-3 (Version None)
Quarter: 2011Q2

REPORT INFORMATION
  Report Type: 
  Country: None (occurrence: None)
  Receive Date: 20110603
  Receipt Date: 20110519
  Transmission Date: 20111010
  Serious: Yes (Other)
  Sender: FDA-Public Use
  Company Number: JPI-P-015146

PATIENT
  Sex: Female

DRUGS (1)
  1. XYREM [Suspect]
     Indication: PRODUCT USED FOR UNKNOWN INDICATION
     Dosage: 3 GM (1.5 GM, 2 IN 1 D), ORAL; ORAL; 2 GM FIRST DOSE/1 GM SECOND DOSE, ORAL;
     Route: 048

REACTIONS (1)
  - BRAIN INJURY [None]
